FAERS Safety Report 4624048-7 (Version None)
Quarter: 2005Q1

REPORT INFORMATION
  Report Type: 
  Country: None (occurrence: None)
  Receive Date: 20050329
  Receipt Date: 20050316
  Transmission Date: 20050727
  Serious: Yes (Hospitalization)
  Sender: FDA-Public Use
  Company Number: 2005045439

PATIENT
  Age: 12 Year
  Sex: Male

DRUGS (2)
  1. ZITHROMAX [Suspect]
     Indication: PHARYNGITIS
     Dosage: 200 MG (200 MG, 1 IN 1 D); ORAL
     Route: 048
  2. PARACETAMOL [Concomitant]

REACTIONS (1)
  - HEREDITARY ANGIOEDEMA [None]
